FAERS Safety Report 9054656 (Version 3)
Quarter: 2013Q3

REPORT INFORMATION
  Report Type: Spontaneous
  Country: US (occurrence: US)
  Receive Date: 20130208
  Receipt Date: 20130906
  Transmission Date: 20140515
  Serious: Yes (Life-Threatening)
  Sender: FDA-Public Use
  Company Number: US-BAYER-2013-014290

PATIENT
  Age: 47 Year
  Sex: Female
  Weight: 110.66 kg

DRUGS (8)
  1. YAZ [Suspect]
     Indication: MENSTRUATION IRREGULAR
     Dosage: UNK
     Dates: start: 20090506, end: 20100128
  2. YAZ [Suspect]
     Indication: CONTRACEPTION
  3. INDOMETHACIN [Concomitant]
  4. PRILOSEC [Concomitant]
  5. CEPHALEXIN [Concomitant]
  6. IBUPROFEN [Concomitant]
     Dosage: 200 MG, EVERY 6-8 HOURS AS NEEDED
  7. MULTIVITAMIN [Concomitant]
     Dosage: 1 DAILY
  8. KEFLEX [Concomitant]

REACTIONS (10)
  - Deep vein thrombosis [None]
  - Thrombophlebitis superficial [None]
  - Injury [None]
  - Asthenia [None]
  - Pain [None]
  - Anhedonia [None]
  - General physical health deterioration [None]
  - Fatigue [None]
  - Anxiety [None]
  - Activities of daily living impaired [None]
